FAERS Safety Report 8903902 (Version 1)
Quarter: 2012Q4

REPORT INFORMATION
  Report Type: 
  Country: US (occurrence: US)
  Receive Date: 20121113
  Receipt Date: 20121113
  Transmission Date: 20130627
  Serious: Yes (Hospitalization)
  Sender: FDA-Public Use
  Company Number: US-ASTRAZENECA-2012SE85549

PATIENT
  Age: 76 Year
  Sex: Male
  Weight: 68 kg

DRUGS (15)
  1. SYMBICORT [Suspect]
     Indication: CHRONIC OBSTRUCTIVE PULMONARY DISEASE
     Dosage: 160/4.5ug two puffs two times daily
     Route: 055
     Dates: start: 2011
  2. OMEPRAZOLE [Suspect]
     Indication: ABDOMINAL DISCOMFORT
     Route: 048
     Dates: start: 201205
  3. LIPITOR [Concomitant]
     Indication: HYPERCHOLESTEROLAEMIA
  4. TIZANIDINE [Concomitant]
     Indication: SPINAL OSTEOARTHRITIS
     Dosage: 4 mg every 6-8 hours as needed
     Dates: start: 2011
  5. ASPIRIN [Concomitant]
     Dates: start: 201210
  6. METHOTREXATE [Concomitant]
     Indication: OSTEOARTHRITIS
     Dosage: 6 tablets weekly
     Dates: start: 2011
  7. PREDNISONE [Concomitant]
     Indication: ARTHRITIS
     Dates: start: 2011
  8. FOLIC ACID [Concomitant]
     Indication: ARTHRITIS
     Dates: start: 2011
  9. VENLAFAXINE HYDROCHLORIDE [Concomitant]
     Indication: ABNORMAL BEHAVIOUR
     Dates: start: 201205
  10. TRAMADOL [Concomitant]
     Indication: SPINAL OSTEOARTHRITIS
  11. LOVASTATIN [Concomitant]
     Indication: BLOOD CHOLESTEROL ABNORMAL
     Dates: start: 2008
  12. CALCIUM [Concomitant]
     Dosage: for 3 or 4 years
  13. FISH OIL [Concomitant]
     Dosage: at least 4 years
  14. MULTIVITAMIN [Concomitant]
  15. GLUCOSAMINE [Concomitant]
     Indication: ARTHRITIS

REACTIONS (1)
  - Arthropathy [Recovering/Resolving]
